FAERS Safety Report 4661360-X (Version None)
Quarter: 2005Q2

REPORT INFORMATION
  Report Type: 
  Country: None (occurrence: None)
  Receive Date: 20050427
  Receipt Date: 20050406
  Transmission Date: 20051028
  Serious: No
  Sender: FDA-Public Use
  Company Number: 212659

PATIENT
  Age: 49 Year
  Sex: Male

DRUGS (4)
  1. XOLAIR [Suspect]
     Indication: ASTHMA
     Dosage: 2, 1/MONTH, SUBCUTANEOUS
     Route: 058
  2. PREDNISONE [Concomitant]
  3. ALLEGRA [Concomitant]
  4. METPROLOL (METOPROLOL TARTRATE) [Concomitant]

REACTIONS (1)
  - BLOOD PRESSURE INCREASED [None]
